FAERS Safety Report 6016415-4 (Version None)
Quarter: 2008Q4

REPORT INFORMATION
  Report Type: 
  Country: None (occurrence: None)
  Receive Date: 20081222
  Receipt Date: 20081211
  Transmission Date: 20090506
  Serious: Yes (Other)
  Sender: FDA-Public Use
  Company Number: US-SANOFI-SYNTHELABO-A03200802604

PATIENT
  Sex: Female
  Weight: 75.8 kg

DRUGS (8)
  1. CALCIUM [Concomitant]
     Indication: DRUG USE FOR UNKNOWN INDICATION
     Dosage: 1 TAB DAILY
     Route: 065
  2. IRON [Concomitant]
     Indication: DRUG USE FOR UNKNOWN INDICATION
     Dosage: 1 TAB DAILY
     Route: 065
  3. E 400 [Concomitant]
     Indication: DRUG USE FOR UNKNOWN INDICATION
     Dosage: 1 TAB DAILY
     Route: 065
  4. ASCORBIC ACID [Concomitant]
     Indication: DRUG USE FOR UNKNOWN INDICATION
     Dosage: 1 TAB DAILY
     Route: 065
  5. CENTRUM [Concomitant]
     Indication: DRUG USE FOR UNKNOWN INDICATION
     Dosage: 1 TAB DAILY
     Route: 065
  6. AMBIEN CR [Suspect]
     Indication: INSOMNIA
     Dosage: TOOK 7 TABLETS IN ONE YEAR PERIOD
     Route: 048
     Dates: start: 20070717, end: 20080617
  7. VITAMIN B-12 [Concomitant]
     Indication: DRUG USE FOR UNKNOWN INDICATION
     Route: 065
  8. ASPIRIN [Concomitant]
     Indication: DRUG USE FOR UNKNOWN INDICATION
     Dosage: 1 TAB DAILY
     Route: 065

REACTIONS (8)
  - AMNESIA [None]
  - CONFUSIONAL STATE [None]
  - DIZZINESS [None]
  - FATIGUE [None]
  - GAIT DISTURBANCE [None]
  - IMPAIRED DRIVING ABILITY [None]
  - THERAPEUTIC RESPONSE PROLONGED [None]
  - TRANSIENT ISCHAEMIC ATTACK [None]
